FAERS Safety Report 18168713 (Version 1)
Quarter: 2020Q3

REPORT INFORMATION
  Report Type: Spontaneous
  Country: DE (occurrence: DE)
  Receive Date: 20200819
  Receipt Date: 20200819
  Transmission Date: 20201103
  Serious: Yes (Hospitalization)
  Sender: FDA-Public Use
  Company Number: DE-TEVA-2020-DE-1815360

PATIENT
  Age: 93 Year
  Sex: Male

DRUGS (3)
  1. SIMVASTATIN. [Concomitant]
     Active Substance: SIMVASTATIN
     Dosage: 20 MILLIGRAM DAILY; 20 MG, 0?0?1?0
  2. CANDESARTAN. [Suspect]
     Active Substance: CANDESARTAN
     Dosage: 1 DOSAGE FORMS DAILY; 8 MG, 0.5?0?0.5?0
  3. TORASEMIDE [Suspect]
     Active Substance: TORSEMIDE
     Dosage: 1.5 DOSAGE FORMS DAILY; 10 MG, 1.5?0?0?0

REACTIONS (3)
  - Acute kidney injury [Unknown]
  - Pallor [Unknown]
  - General physical health deterioration [Unknown]
